FAERS Safety Report 4780987-8 (Version None)
Quarter: 2005Q3

REPORT INFORMATION
  Report Type: 
  Country: None (occurrence: None)
  Receive Date: 20050928
  Receipt Date: 20050705
  Transmission Date: 20060218
  Serious: Yes (Hospitalization)
  Sender: FDA-Public Use
  Company Number: JP-BOEHRINGER INGELHEIM PHARMACEUTICALS, INC.-2005-BP-11268NB

PATIENT
  Sex: Male

DRUGS (9)
  1. MICARDIS [Suspect]
     Indication: HYPERTENSION
     Route: 048
     Dates: start: 20030101, end: 20050705
  2. AMLODIPINE BESYLATE [Suspect]
     Indication: HYPERTENSION
     Route: 048
     Dates: start: 20030101, end: 20050705
  3. SLO-BID [Concomitant]
     Route: 048
     Dates: start: 20050613
  4. MEPTIN [Concomitant]
     Route: 048
     Dates: start: 20050613
  5. MUCOSOLVAN [Concomitant]
     Route: 048
     Dates: start: 20050404
  6. HOKUNALIN:TAPE (TULOBUTEROL) [Concomitant]
     Route: 062
     Dates: start: 20050620
  7. SPIRIVA [Concomitant]
     Route: 055
     Dates: start: 20050627, end: 20050701
  8. MEDICON [Concomitant]
     Route: 048
     Dates: start: 20050404
  9. COUGHCODE [Concomitant]
     Route: 048
     Dates: start: 20050404

REACTIONS (2)
  - INTERSTITIAL LUNG DISEASE [None]
  - RESPIRATORY FAILURE [None]
